FAERS Safety Report 23946791 (Version 1)
Quarter: 2024Q2

REPORT INFORMATION
  Report Type: Spontaneous
  Country: US (occurrence: None)
  Receive Date: 20240606
  Receipt Date: 20240606
  Transmission Date: 20240716
  Serious: Yes (Hospitalization)
  Sender: FDA-Public Use
  Company Number: None

PATIENT
  Age: 37 Year
  Sex: Female
  Weight: 65.25 kg

DRUGS (5)
  1. PREDNISOLONE ACETATE [Suspect]
     Active Substance: PREDNISOLONE ACETATE
     Indication: Eye infection
     Dosage: FREQUENCY : 4 TIMES A DAY?
     Route: 047
  2. PREDNISOLONE ACETATE [Suspect]
     Active Substance: PREDNISOLONE ACETATE
     Indication: Eye swelling
  3. PREDNISOLONE ACETATE [Suspect]
     Active Substance: PREDNISOLONE ACETATE
     Indication: Blindness
  4. INSULIN NOS [Concomitant]
     Active Substance: INSULIN NOS
  5. NOTDB BITCH [Concomitant]

REACTIONS (6)
  - Blood pressure increased [None]
  - Diabetes mellitus [None]
  - Peripheral swelling [None]
  - Blood potassium increased [None]
  - Internal haemorrhage [None]
  - Near death experience [None]

NARRATIVE: CASE EVENT DATE: 20240412
